FAERS Safety Report 9462784 (Version 1)
Quarter: 2013Q3

REPORT INFORMATION
  Report Type: Spontaneous
  Country: FR (occurrence: None)
  Receive Date: 20130814
  Receipt Date: 20130814
  Transmission Date: 20140515
  Serious: Yes (Hospitalization)
  Sender: FDA-Public Use
  Company Number: SYM-2013-07805

PATIENT
  Age: 78 Year
  Sex: Male

DRUGS (9)
  1. MONO-TILDIEM [Suspect]
     Indication: PRODUCT USED FOR UNKNOWN INDICATION
     Route: 048
     Dates: start: 20100507, end: 20130621
  2. KARDEGIC [Concomitant]
  3. INIPOMP [Concomitant]
  4. TERCIAN [Concomitant]
  5. EBIXA [Concomitant]
  6. COVERSYL [Concomitant]
  7. POTASSIUM GLUCONATE [Concomitant]
  8. FORLAX [Concomitant]
  9. XALACOM [Concomitant]

REACTIONS (9)
  - Renal failure [None]
  - Bradycardia [None]
  - Malaise [None]
  - Obsessive thoughts [None]
  - Hyporesponsive to stimuli [None]
  - Hypotension [None]
  - Heart rate decreased [None]
  - Oxygen saturation decreased [None]
  - Bundle branch block left [None]
